FAERS Safety Report 15206953 (Version 2)
Quarter: 2025Q1

REPORT INFORMATION
  Report Type: Spontaneous
  Country: US (occurrence: US)
  Receive Date: 20180727
  Receipt Date: 20250106
  Transmission Date: 20250408
  Serious: Yes (Death)
  Sender: PROCTER AND GAMBLE
  Company Number: US-PROCTER_AND_GAMBLE-GS18085781

PATIENT

DRUGS (1)
  1. DIPHENHYDRAMINE HYDROCHLORIDE [Suspect]
     Active Substance: DIPHENHYDRAMINE HYDROCHLORIDE
     Route: 064

REACTIONS (2)
  - Foetal death [Fatal]
  - Foetal exposure during pregnancy [Fatal]
